FAERS Safety Report 9744291 (Version 1)
Quarter: 2013Q4

REPORT INFORMATION
  Report Type: Spontaneous
  Country: US (occurrence: US)
  Receive Date: 20131210
  Receipt Date: 20131210
  Transmission Date: 20140711
  Serious: No
  Sender: FDA-Public Use
  Company Number: US-009507513-1311USA010454

PATIENT
  Sex: Male

DRUGS (1)
  1. LOTRIMIN AF SPRAY POWDER [Suspect]
     Indication: ANAL PRURITUS
     Dosage: UNK, UNKNOWN
     Route: 061
     Dates: start: 2013

REACTIONS (5)
  - Anal haemorrhage [Not Recovered/Not Resolved]
  - Proctalgia [Not Recovered/Not Resolved]
  - Anorectal discomfort [Not Recovered/Not Resolved]
  - Drug administered at inappropriate site [Unknown]
  - Off label use [Unknown]
